FAERS Safety Report 20150613 (Version 1)
Quarter: 2021Q4

REPORT INFORMATION
  Report Type: Spontaneous
  Country: JP (occurrence: JP)
  Receive Date: 20211206
  Receipt Date: 20211206
  Transmission Date: 20220303
  Serious: Yes (Other)
  Sender: FDA-Public Use
  Company Number: JP-TAKEDA-2021TUS077058

PATIENT
  Age: 5 Decade
  Sex: Male

DRUGS (1)
  1. LIALDA [Suspect]
     Active Substance: MESALAMINE
     Indication: Product used for unknown indication
     Dosage: 1200 MILLIGRAM
     Route: 048
     Dates: end: 2021

REACTIONS (2)
  - Melaena [Unknown]
  - Product residue present [Unknown]

NARRATIVE: CASE EVENT DATE: 20210101
